FAERS Safety Report 13343194 (Version 1)
Quarter: 2017Q1

REPORT INFORMATION
  Report Type: Spontaneous
  Country: US (occurrence: US)
  Receive Date: 20170316
  Receipt Date: 20170316
  Transmission Date: 20170428
  Serious: No
  Sender: FDA-Public Use
  Company Number: US-ALLERGAN-1705343US

PATIENT
  Age: 70 Year
  Sex: Male

DRUGS (1)
  1. AVYCAZ [Suspect]
     Active Substance: AVIBACTAM SODIUM\CEFTAZIDIME
     Indication: INFECTION
     Dosage: UNK

REACTIONS (3)
  - Confusional state [Not Recovered/Not Resolved]
  - Pallor [Not Recovered/Not Resolved]
  - Mental status changes [Not Recovered/Not Resolved]
